FAERS Safety Report 4923497-7 (Version None)
Quarter: 2006Q1

REPORT INFORMATION
  Report Type: 
  Country: None (occurrence: None)
  Receive Date: 20060227
  Receipt Date: 20060217
  Transmission Date: 20060701
  Serious: Yes (Disabling, Other)
  Sender: FDA-Public Use
  Company Number: PHBS2006SK02673

PATIENT
  Age: 71 Year
  Sex: Male

DRUGS (4)
  1. STALEVO 100 [Suspect]
     Indication: PARKINSON'S DISEASE
     Dosage: 1 DF, QID
     Route: 048
     Dates: start: 20051221, end: 20060117
  2. STALEVO 100 [Suspect]
     Dosage: 1 DF, TID
     Route: 048
     Dates: start: 20060117, end: 20060216
  3. TIAPRIDAL [Concomitant]
     Dosage: 1/2-0-1 PER DAY
  4. REQUIP [Concomitant]
     Dosage: 5 MG, TID

REACTIONS (1)
  - HAEMATURIA [None]
